FAERS Safety Report 9767854 (Version 3)
Quarter: 2014Q1

REPORT INFORMATION
  Report Type: Spontaneous
  Country: DE (occurrence: DE)
  Receive Date: 20131217
  Receipt Date: 20140312
  Transmission Date: 20141002
  Serious: Yes (Life-Threatening, Hospitalization, Disabling)
  Sender: FDA-Public Use
  Company Number: DE-GLAXOSMITHKLINE-D0082279A

PATIENT
  Sex: Female
  Weight: 82 kg

DRUGS (3)
  1. ALLI [Suspect]
     Route: 065
     Dates: start: 201005, end: 20100610
  2. ENALAPRIL [Concomitant]
     Indication: HYPERTENSION
     Route: 065
     Dates: start: 2004, end: 201006
  3. NUVARING [Concomitant]
     Indication: CONTRACEPTION
     Route: 065
     Dates: start: 2008, end: 20100610

REACTIONS (1)
  - Intestinal infarction [Recovered/Resolved with Sequelae]
